FAERS Safety Report 14992707 (Version 1)
Quarter: 2018Q2

REPORT INFORMATION
  Report Type: Spontaneous
  Country: DE (occurrence: DE)
  Receive Date: 20180609
  Receipt Date: 20180609
  Transmission Date: 20180711
  Serious: Yes (Hospitalization)
  Sender: FDA-Public Use
  Company Number: DE-TEVA-2018-DE-902927

PATIENT
  Age: 67 Year
  Sex: Female
  Weight: 67 kg

DRUGS (10)
  1. CANDESARTAN CILEXETIL AND HYDROCHLOROTHIAZIDE [Concomitant]
     Active Substance: CANDESARTAN CILEXETIL\HYDROCHLOROTHIAZIDE
     Dosage: 32|12.5 MG,
     Route: 048
  2. PREGABALIN. [Concomitant]
     Active Substance: PREGABALIN
     Route: 048
  3. CISPLATIN. [Suspect]
     Active Substance: CISPLATIN
     Route: 042
  4. LEVOTHYROXINE SODIUM. [Concomitant]
     Active Substance: LEVOTHYROXINE SODIUM
     Route: 048
  5. FORMOTEROL/ACLIDINIUMBROMID [Concomitant]
     Dosage: 340|23 ?G,
     Route: 055
  6. ACETYLSALICYLSAEURE [Concomitant]
     Active Substance: ASPIRIN
     Route: 048
  7. PEMETREXED. [Suspect]
     Active Substance: PEMETREXED
     Route: 042
  8. METAMIZOL [Concomitant]
     Active Substance: METAMIZOLE SODIUM
     Dosage: 500 MG, 2-2-2-2, TABLETTEN
     Route: 048
  9. HYDROMORPHONE [Concomitant]
     Active Substance: HYDROMORPHONE
     Route: 048
  10. SITAGLIPTIN [Concomitant]
     Active Substance: SITAGLIPTIN
     Route: 048

REACTIONS (4)
  - Anaemia [Unknown]
  - Bicytopenia [Unknown]
  - Diarrhoea [Unknown]
  - General physical health deterioration [Unknown]
